FAERS Safety Report 17215851 (Version 2)
Quarter: 2020Q1

REPORT INFORMATION
  Report Type: Spontaneous
  Country: ES (occurrence: ES)
  Receive Date: 20191230
  Receipt Date: 20200110
  Transmission Date: 20200409
  Serious: Yes (Hospitalization)
  Sender: FDA-Public Use
  Company Number: NVSC2019ES078468

PATIENT
  Age: 32 Year
  Sex: Female

DRUGS (2)
  1. SERUM ALBUMIN HUMAN [Suspect]
     Active Substance: ALBUMIN HUMAN
     Indication: OVARIAN HYPERSTIMULATION SYNDROME
     Dosage: UNK
     Route: 065
  2. FUROSEMIDE. [Suspect]
     Active Substance: FUROSEMIDE
     Indication: OVARIAN HYPERSTIMULATION SYNDROME
     Dosage: UNK
     Route: 042

REACTIONS (4)
  - Maternal exposure during pregnancy [Unknown]
  - Product use in unapproved indication [Unknown]
  - Dyspnoea [Recovered/Resolved]
  - Pleural effusion [Recovered/Resolved]
